FAERS Safety Report 8258731-1 (Version None)
Quarter: 2012Q2

REPORT INFORMATION
  Report Type: 
  Country: None (occurrence: None)
  Receive Date: 20120404
  Receipt Date: 20120404
  Transmission Date: 20120825
  Serious: Yes (Life-Threatening, Hospitalization)
  Sender: FDA-Public Use
  Company Number: None

PATIENT
  Age: 39 Year
  Sex: Female
  Weight: 83.914 kg

DRUGS (2)
  1. ALLEGRA ALLERGY [Suspect]
     Indication: RHINORRHOEA
     Dosage: 60.0 MG
     Dates: start: 20120319, end: 20120319
  2. ALLEGRA ALLERGY [Suspect]
     Indication: LACRIMATION INCREASED
     Dosage: 60.0 MG
     Dates: start: 20120319, end: 20120319

REACTIONS (1)
  - CONVULSION [None]
